FAERS Safety Report 6744480-5 (Version None)
Quarter: 2010Q2

REPORT INFORMATION
  Report Type: 
  Country: None (occurrence: None)
  Receive Date: 20100527
  Receipt Date: 20100518
  Transmission Date: 20101027
  Serious: Yes (Life-Threatening, Hospitalization, Other)
  Sender: FDA-Public Use
  Company Number: FR-PFIZER INC-2010014859

PATIENT
  Age: 79 Year
  Sex: Female
  Weight: 54 kg

DRUGS (5)
  1. SUTENT [Suspect]
     Indication: RENAL CELL CARCINOMA
     Dosage: 100 MG, DAILY
     Route: 048
     Dates: start: 20090908, end: 20091105
  2. LORAZEPAM [Concomitant]
     Dosage: 1 MG, 1X/DAY
  3. XYZAL [Concomitant]
     Dosage: 5 MG, 1X/DAY
  4. FORLAX [Concomitant]
     Dosage: UNK
  5. IXPRIM [Concomitant]
     Dosage: 3-6 DF PER DAY

REACTIONS (3)
  - ACCIDENT [None]
  - CONGESTIVE CARDIOMYOPATHY [None]
  - THROMBOCYTOPENIA [None]
